FAERS Safety Report 22170831 (Version 1)
Quarter: 2023Q2

REPORT INFORMATION
  Report Type: Spontaneous
  Country: US (occurrence: None)
  Receive Date: 20230403
  Receipt Date: 20230403
  Transmission Date: 20230721
  Serious: No
  Sender: FDA-Public Use
  Company Number: None

PATIENT
  Sex: Female
  Weight: 81.65 kg

DRUGS (1)
  1. CAPECITABINE [Suspect]
     Active Substance: CAPECITABINE
     Indication: Rectal cancer
     Dosage: OTHER QUANTITY : 3 T;?FREQUENCY : TWICE A DAY;?OTHER ROUTE : OR 14 ON 7D OFF;?
     Route: 050

REACTIONS (3)
  - Diarrhoea [None]
  - Abdominal pain [None]
  - Blood potassium decreased [None]
